FAERS Safety Report 22631354 (Version 1)
Quarter: 2023Q2

REPORT INFORMATION
  Report Type: Spontaneous
  Country: CN (occurrence: CN)
  Receive Date: 20230623
  Receipt Date: 20230623
  Transmission Date: 20230721
  Serious: Yes (Death, Hospitalization, Other)
  Sender: FDA-Public Use
  Company Number: CN-STERISCIENCE B.V.-2023-ST-001530

PATIENT
  Age: 48 Year
  Sex: Male

DRUGS (40)
  1. VANCOMYCIN [Suspect]
     Active Substance: VANCOMYCIN
     Indication: Haematological infection
     Dosage: UNK
     Route: 065
  2. VANCOMYCIN [Suspect]
     Active Substance: VANCOMYCIN
     Indication: Abdominal infection
  3. VANCOMYCIN [Suspect]
     Active Substance: VANCOMYCIN
     Indication: Pneumonia
  4. VANCOMYCIN [Suspect]
     Active Substance: VANCOMYCIN
     Indication: Klebsiella infection
  5. MEROPENEM [Suspect]
     Active Substance: MEROPENEM
     Indication: Haematological infection
     Dosage: UNK
     Route: 065
  6. MEROPENEM [Suspect]
     Active Substance: MEROPENEM
     Indication: Abdominal infection
  7. MEROPENEM [Suspect]
     Active Substance: MEROPENEM
     Indication: Pneumonia
  8. MEROPENEM [Suspect]
     Active Substance: MEROPENEM
     Indication: Klebsiella infection
  9. CEFOPERAZONE\SULBACTAM [Suspect]
     Active Substance: CEFOPERAZONE\SULBACTAM
     Indication: Haematological infection
     Dosage: UNK
     Route: 065
  10. CEFOPERAZONE\SULBACTAM [Suspect]
     Active Substance: CEFOPERAZONE\SULBACTAM
     Indication: Abdominal infection
  11. CEFOPERAZONE\SULBACTAM [Suspect]
     Active Substance: CEFOPERAZONE\SULBACTAM
     Indication: Pneumonia
  12. CEFOPERAZONE\SULBACTAM [Suspect]
     Active Substance: CEFOPERAZONE\SULBACTAM
     Indication: Klebsiella infection
  13. IMIPENEM [Suspect]
     Active Substance: IMIPENEM
     Indication: Haematological infection
     Dosage: UNK
     Route: 065
  14. IMIPENEM [Suspect]
     Active Substance: IMIPENEM
     Indication: Abdominal infection
  15. IMIPENEM [Suspect]
     Active Substance: IMIPENEM
     Indication: Pneumonia
  16. IMIPENEM [Suspect]
     Active Substance: IMIPENEM
     Indication: Klebsiella infection
  17. TIGECYCLINE [Suspect]
     Active Substance: TIGECYCLINE
     Indication: Haematological infection
     Dosage: UNK
     Route: 065
  18. TIGECYCLINE [Suspect]
     Active Substance: TIGECYCLINE
     Indication: Abdominal infection
  19. TIGECYCLINE [Suspect]
     Active Substance: TIGECYCLINE
     Indication: Pneumonia
  20. TIGECYCLINE [Suspect]
     Active Substance: TIGECYCLINE
     Indication: Klebsiella infection
  21. FOSFOMYCIN [Suspect]
     Active Substance: FOSFOMYCIN
     Indication: Haematological infection
     Dosage: UNK
     Route: 065
  22. FOSFOMYCIN [Suspect]
     Active Substance: FOSFOMYCIN
     Indication: Abdominal infection
  23. FOSFOMYCIN [Suspect]
     Active Substance: FOSFOMYCIN
     Indication: Pneumonia
  24. FOSFOMYCIN [Suspect]
     Active Substance: FOSFOMYCIN
     Indication: Klebsiella infection
  25. POLYMYXIN B [Suspect]
     Active Substance: POLYMYXIN B
     Indication: Haematological infection
     Dosage: UNK
     Route: 065
  26. POLYMYXIN B [Suspect]
     Active Substance: POLYMYXIN B
     Indication: Abdominal infection
  27. POLYMYXIN B [Suspect]
     Active Substance: POLYMYXIN B
     Indication: Pneumonia
  28. POLYMYXIN B [Suspect]
     Active Substance: POLYMYXIN B
     Indication: Klebsiella infection
  29. AVIBACTAM SODIUM\CEFTAZIDIME [Suspect]
     Active Substance: AVIBACTAM SODIUM\CEFTAZIDIME
     Indication: Haematological infection
     Dosage: 2.5 GRAM, BID (12 HOURS)
     Route: 042
  30. AVIBACTAM SODIUM\CEFTAZIDIME [Suspect]
     Active Substance: AVIBACTAM SODIUM\CEFTAZIDIME
     Indication: Abdominal infection
     Dosage: 1.25 GRAM, BID (12 HOURS)
     Route: 042
  31. AVIBACTAM SODIUM\CEFTAZIDIME [Suspect]
     Active Substance: AVIBACTAM SODIUM\CEFTAZIDIME
     Indication: Pneumonia
  32. AVIBACTAM SODIUM\CEFTAZIDIME [Suspect]
     Active Substance: AVIBACTAM SODIUM\CEFTAZIDIME
     Indication: Klebsiella infection
  33. AVIBACTAM SODIUM\CEFTAZIDIME [Suspect]
     Active Substance: AVIBACTAM SODIUM\CEFTAZIDIME
     Indication: Sepsis
  34. AVIBACTAM SODIUM\CEFTAZIDIME [Suspect]
     Active Substance: AVIBACTAM SODIUM\CEFTAZIDIME
     Indication: Septic shock
  35. LEVOFLOXACIN [Suspect]
     Active Substance: LEVOFLOXACIN
     Indication: Haematological infection
     Dosage: UNK
     Route: 065
  36. LEVOFLOXACIN [Suspect]
     Active Substance: LEVOFLOXACIN
     Indication: Abdominal infection
  37. LEVOFLOXACIN [Suspect]
     Active Substance: LEVOFLOXACIN
     Indication: Pneumonia
  38. LEVOFLOXACIN [Suspect]
     Active Substance: LEVOFLOXACIN
     Indication: Klebsiella infection
  39. LEVOFLOXACIN [Suspect]
     Active Substance: LEVOFLOXACIN
     Indication: Sepsis
  40. LEVOFLOXACIN [Suspect]
     Active Substance: LEVOFLOXACIN
     Indication: Septic shock

REACTIONS (2)
  - Treatment failure [Fatal]
  - Off label use [Unknown]
